FAERS Safety Report 9175766 (Version 1)
Quarter: 2013Q1

REPORT INFORMATION
  Report Type: Spontaneous
  Country: GB (occurrence: GB)
  Receive Date: 20130320
  Receipt Date: 20130320
  Transmission Date: 20140127
  Serious: Yes (Other)
  Sender: FDA-Public Use
  Company Number: PHHY2013GB024722

PATIENT
  Age: 42 Year
  Sex: Female

DRUGS (5)
  1. DIAZEPAM [Suspect]
     Indication: FEELING OF RELAXATION
     Dosage: 4 MG, BID
     Route: 065
     Dates: start: 201207
  2. ACETYLSALICYLIC ACID [Suspect]
     Indication: PRODUCT USED FOR UNKNOWN INDICATION
     Dosage: UNK UKN, UNK
     Route: 065
  3. KEPPRA [Suspect]
     Indication: CEREBRAL THROMBOSIS
     Dosage: 3 DF, PER DAY
  4. LEVOTHYROXINE SODIUM [Suspect]
     Indication: HYPOTHYROIDISM
     Dosage: UNK UKN, UNK
     Route: 065
  5. SERTRALINE [Concomitant]

REACTIONS (14)
  - Convulsion [Unknown]
  - Suicidal ideation [Unknown]
  - Malaise [Unknown]
  - Insomnia [Unknown]
  - Feeling abnormal [Unknown]
  - Weight decreased [Unknown]
  - Abdominal discomfort [Unknown]
  - Palpitations [Unknown]
  - Hyperhidrosis [Unknown]
  - Hallucination, visual [Unknown]
  - Diarrhoea [Unknown]
  - Vomiting [Unknown]
  - Abdominal pain upper [Unknown]
  - Drug interaction [Unknown]
